FAERS Safety Report 6501838-7 (Version None)
Quarter: 2009Q4

REPORT INFORMATION
  Report Type: 
  Country: None (occurrence: None)
  Receive Date: 20091216
  Receipt Date: 20091208
  Transmission Date: 20100525
  Serious: Yes (Other)
  Sender: FDA-Public Use
  Company Number: CH-WYE-H12592709

PATIENT
  Sex: Female

DRUGS (10)
  1. ZURCAL [Suspect]
     Indication: PROPHYLAXIS
     Route: 064
     Dates: start: 20090101, end: 20090101
  2. EPIRUBICIN [Suspect]
     Indication: BREAST CANCER
     Dosage: 100 MG/M^2 ONCE WEEKLY
     Route: 064
     Dates: start: 20090106, end: 20090217
  3. ELEVIT [Concomitant]
     Indication: PREGNANCY
     Route: 064
     Dates: start: 20080101, end: 20090101
  4. ZOFRAN [Suspect]
     Indication: NAUSEA
     Dosage: 8 MG CYCLICAL
     Route: 064
     Dates: start: 20090106, end: 20090101
  5. ZOFRAN [Suspect]
     Indication: VOMITING
  6. SOLU-MEDROL [Concomitant]
     Indication: NAUSEA
     Dosage: UNKNOWN
     Route: 064
  7. SOLU-MEDROL [Concomitant]
     Indication: VOMITING
  8. FERRO SANOL [Concomitant]
     Route: 064
  9. FLUOROURACIL [Suspect]
     Indication: BREAST CANCER
     Dosage: 500 MG/M^2 ONCE WEEKLY
     Route: 064
     Dates: start: 20090106, end: 20090217
  10. CYCLOPHOSPHAMIDE [Suspect]
     Indication: BREAST CANCER
     Dosage: 500 MG/M^2 ONCE WEEKLY
     Route: 064
     Dates: start: 20090106, end: 20090217

REACTIONS (4)
  - FOETAL GROWTH RETARDATION [None]
  - HYPOGLYCAEMIA NEONATAL [None]
  - NEONATAL HYPOTENSION [None]
  - NEONATAL RESPIRATORY DISTRESS SYNDROME [None]
